FAERS Safety Report 22385990 (Version 1)
Quarter: 2023Q2

REPORT INFORMATION
  Report Type: Spontaneous
  Country: IL (occurrence: IL)
  Receive Date: 20230530
  Receipt Date: 20230530
  Transmission Date: 20230721
  Serious: Yes (Other)
  Sender: FDA-Public Use
  Company Number: IL-APIL-2315882US

PATIENT
  Sex: Male

DRUGS (1)
  1. UBROGEPANT [Suspect]
     Active Substance: UBROGEPANT
     Indication: Product used for unknown indication

REACTIONS (4)
  - Lacunar infarction [Unknown]
  - Vision blurred [Unknown]
  - Visual impairment [Unknown]
  - Transient ischaemic attack [Unknown]
